FAERS Safety Report 24258636 (Version 1)
Quarter: 2024Q3

REPORT INFORMATION
  Report Type: Spontaneous
  Country: CN (occurrence: CN)
  Receive Date: 20240828
  Receipt Date: 20240828
  Transmission Date: 20241017
  Serious: Yes (Hospitalization, Other)
  Sender: PFIZER
  Company Number: CN-PFIZER INC-PV202400110620

PATIENT
  Age: 61 Year
  Sex: Female
  Weight: 62 kg

DRUGS (4)
  1. PALBOCICLIB [Suspect]
     Active Substance: PALBOCICLIB
     Indication: Chemotherapy
     Dosage: 125 MG, 1X/DAY, D1-21
     Route: 048
     Dates: start: 20240727, end: 20240816
  2. PALBOCICLIB [Suspect]
     Active Substance: PALBOCICLIB
     Indication: Breast cancer female
  3. EXEMESTANE [Suspect]
     Active Substance: EXEMESTANE
     Indication: Chemotherapy
     Dosage: 25 MG, 1X/DAY
     Route: 048
     Dates: start: 20240727, end: 20240820
  4. EXEMESTANE [Suspect]
     Active Substance: EXEMESTANE
     Indication: Breast cancer female

REACTIONS (1)
  - Myelosuppression [Unknown]

NARRATIVE: CASE EVENT DATE: 20240821
